FAERS Safety Report 8331088 (Version 5)
Quarter: 2016Q3

REPORT INFORMATION
  Report Type: Spontaneous
  Country: US (occurrence: US)
  Receive Date: 20120111
  Receipt Date: 20160824
  Transmission Date: 20161109
  Serious: Yes (Death, Hospitalization, Disabling, Other)
  Sender: FDA-Public Use
  Company Number: US-009507513-1201USA01016

PATIENT
  Sex: Female

DRUGS (4)
  1. ALENDRONATE SODIUM. [Suspect]
     Active Substance: ALENDRONATE SODIUM
     Indication: OSTEOPOROSIS
     Dosage: UNK
     Route: 048
     Dates: start: 20080310
  2. FOSAMAX [Suspect]
     Active Substance: ALENDRONATE SODIUM
     Indication: OSTEOPOROSIS
     Dosage: 70 MG, QW
     Route: 048
     Dates: start: 20050919, end: 201011
  3. CERTAGEN [Concomitant]
     Active Substance: FERROUS FUMARATE\FOLIC ACID
     Indication: PRODUCT USED FOR UNKNOWN INDICATION
     Route: 065
     Dates: start: 20060908, end: 20090216
  4. FOSAMAX [Suspect]
     Active Substance: ALENDRONATE SODIUM
     Dosage: UNK
     Route: 048
     Dates: end: 20100705

REACTIONS (19)
  - Proteus test positive [Unknown]
  - Failure to thrive [Unknown]
  - Staphylococcal abscess [Unknown]
  - Femur fracture [Not Recovered/Not Resolved]
  - Pleural effusion [Unknown]
  - Cardio-respiratory arrest [Fatal]
  - Arrhythmia [Unknown]
  - Hyperlipidaemia [Unknown]
  - Gastrooesophageal reflux disease [Unknown]
  - Abscess limb [Unknown]
  - Cellulitis [Unknown]
  - Coronary artery disease [Fatal]
  - Foot fracture [Unknown]
  - Atelectasis [Unknown]
  - Fall [Unknown]
  - Cardiac failure congestive [Fatal]
  - Pneumonia [Unknown]
  - Clostridium difficile infection [Unknown]
  - Thrombosis [Unknown]

NARRATIVE: CASE EVENT DATE: 2007
